FAERS Safety Report 10670256 (Version 4)
Quarter: 2015Q3

REPORT INFORMATION
  Report Type: Spontaneous
  Country: US (occurrence: US)
  Receive Date: 20141223
  Receipt Date: 20150811
  Transmission Date: 20151125
  Serious: Yes (Death)
  Sender: FDA-Public Use
  Company Number: US-BIOGENIDEC-2014BI131174

PATIENT
  Sex: Male

DRUGS (11)
  1. TECFIDERA [Suspect]
     Active Substance: DIMETHYL FUMARATE
     Indication: MULTIPLE SCLEROSIS
     Route: 048
     Dates: start: 20140722
  2. OXYCODONE [Concomitant]
     Active Substance: OXYCODONE
  3. LEXAPRO [Concomitant]
     Active Substance: ESCITALOPRAM OXALATE
  4. DIAZEPAM. [Concomitant]
     Active Substance: DIAZEPAM
  5. NUVIGIL [Concomitant]
     Active Substance: ARMODAFINIL
  6. SOMA [Concomitant]
     Active Substance: CARISOPRODOL
  7. ETHANOL [Concomitant]
     Active Substance: ALCOHOL
  8. CITALOPRAM [Concomitant]
     Active Substance: CITALOPRAM HYDROBROMIDE
  9. TECFIDERA [Suspect]
     Active Substance: DIMETHYL FUMARATE
     Indication: MULTIPLE SCLEROSIS
     Route: 048
     Dates: start: 20140729
  10. GABAPENTIN. [Concomitant]
     Active Substance: GABAPENTIN
  11. TIZANIDINE. [Concomitant]
     Active Substance: TIZANIDINE

REACTIONS (1)
  - Toxicity to various agents [Fatal]
